FAERS Safety Report 17669915 (Version 1)
Quarter: 2020Q2

REPORT INFORMATION
  Report Type: Spontaneous
  Country: DK (occurrence: DK)
  Receive Date: 20200415
  Receipt Date: 20200415
  Transmission Date: 20200713
  Serious: Yes (Life-Threatening, Hospitalization, Disabling, Other)
  Sender: FDA-Public Use
  Company Number: DK-BRISTOL-MYERS SQUIBB COMPANY-BMS-2020-030157

PATIENT
  Age: 82 Year
  Sex: Female

DRUGS (4)
  1. AMLODIPIN SANDOZ [AMLODIPINE BESILATE] [Concomitant]
     Indication: HYPERTENSION
     Dosage: STYRKE: 5MG
     Route: 048
     Dates: start: 20180903
  2. ELIQUIS [Suspect]
     Active Substance: APIXABAN
     Indication: CEREBROVASCULAR ACCIDENT PROPHYLAXIS
     Dosage: STYRKE: 5MG
     Route: 048
     Dates: start: 2017, end: 20200303
  3. METOMYLAN [Concomitant]
     Active Substance: METOPROLOL SUCCINATE
     Indication: CARDIAC FAILURE
     Dosage: STYRKE: 25 MG
     Route: 048
  4. RAMIPRIL HEXAL [Concomitant]
     Active Substance: RAMIPRIL
     Indication: HYPERTENSION
     Dosage: STYRKE 5 MILLIGRAM
     Route: 048
     Dates: start: 20110407

REACTIONS (5)
  - Facial paresis [Unknown]
  - Hemiparesis [Unknown]
  - Dysarthria [Unknown]
  - Cerebral haemorrhage [Not Recovered/Not Resolved]
  - Intraventricular haemorrhage [Unknown]

NARRATIVE: CASE EVENT DATE: 20200303
